FAERS Safety Report 6966168-8 (Version None)
Quarter: 2010Q3

REPORT INFORMATION
  Report Type: 
  Country: None (occurrence: None)
  Receive Date: 20100903
  Receipt Date: 20100825
  Transmission Date: 20110219
  Serious: Yes (Other)
  Sender: FDA-Public Use
  Company Number: GXKR2010PL09668

PATIENT
  Sex: Female

DRUGS (1)
  1. METHOTREXATE (NGX) [Suspect]
     Indication: RHEUMATOID ARTHRITIS
     Dosage: 15 MG, QW
     Route: 048
     Dates: start: 20040101

REACTIONS (6)
  - ASTHENIA [None]
  - BLOOD PRESSURE FLUCTUATION [None]
  - HYPERHIDROSIS [None]
  - NAUSEA [None]
  - PALPITATIONS [None]
  - VOMITING [None]
